FAERS Safety Report 24709800 (Version 1)
Quarter: 2024Q4

REPORT INFORMATION
  Report Type: Spontaneous
  Country: FR (occurrence: FR)
  Receive Date: 20241209
  Receipt Date: 20241209
  Transmission Date: 20250114
  Serious: Yes (Hospitalization, Other)
  Sender: CELLTRION
  Company Number: None

PATIENT

DRUGS (2)
  1. RITUXIMAB [Suspect]
     Active Substance: RITUXIMAB
     Indication: Rheumatoid arthritis
     Dosage: 2 G, EVERY 6 MONTHS
     Route: 042
     Dates: start: 20220701, end: 20240321
  2. METHOTREXATE [Suspect]
     Active Substance: METHOTREXATE
     Indication: Rheumatoid arthritis
     Dosage: 15 MG, 1/WEEK
     Route: 058
     Dates: start: 20210101, end: 20240526

REACTIONS (2)
  - Agranulocytosis [Recovered/Resolved]
  - Acute sinusitis [Recovering/Resolving]

NARRATIVE: CASE EVENT DATE: 20240525
